FAERS Safety Report 8923033 (Version 1)
Quarter: 2012Q4

REPORT INFORMATION
  Report Type: Spontaneous
  Country: US (occurrence: None)
  Receive Date: 20121115
  Receipt Date: 20121115
  Transmission Date: 20130627
  Serious: Yes (Other)
  Sender: FDA-Public Use
  Company Number: None

PATIENT

DRUGS (1)
  1. SODIUM FLUORIDE [Suspect]
     Dates: start: 201204, end: 201210

REACTIONS (6)
  - Chapped lips [None]
  - Dry mouth [None]
  - Lip swelling [None]
  - Swollen tongue [None]
  - Oral pain [None]
  - Speech disorder [None]
